FAERS Safety Report 23907904 (Version 1)
Quarter: 2024Q2

REPORT INFORMATION
  Report Type: Spontaneous
  Country: SE (occurrence: SE)
  Receive Date: 20240528
  Receipt Date: 20240528
  Transmission Date: 20240715
  Serious: Yes (Other)
  Sender: FDA-Public Use
  Company Number: SE-BAYER-2024A072306

PATIENT
  Age: 20 Year
  Sex: Female

DRUGS (1)
  1. LEVONORGESTREL [Suspect]
     Active Substance: LEVONORGESTREL
     Route: 015

REACTIONS (6)
  - Seizure [None]
  - Epilepsy [None]
  - Stress [None]
  - Pain in extremity [None]
  - Conversion disorder [None]
  - Tremor [None]
